FAERS Safety Report 17893360 (Version 2)
Quarter: 2020Q2

REPORT INFORMATION
  Report Type: Spontaneous
  Country: US (occurrence: US)
  Receive Date: 20200615
  Receipt Date: 20200630
  Transmission Date: 20200714
  Serious: Yes (Other)
  Sender: FDA-Public Use
  Company Number: US-ABBVIE-20K-163-3440063-00

PATIENT
  Sex: Female

DRUGS (2)
  1. SYNTHROID [Suspect]
     Active Substance: LEVOTHYROXINE SODIUM
     Indication: PRODUCT USED FOR UNKNOWN INDICATION
     Route: 048
     Dates: start: 2007
  2. LEVOTHYROXINE. [Suspect]
     Active Substance: LEVOTHYROXINE
     Indication: PRODUCT USED FOR UNKNOWN INDICATION
     Route: 048

REACTIONS (9)
  - Autoimmune thyroiditis [Unknown]
  - Hair disorder [Unknown]
  - Skin disorder [Unknown]
  - Nail disorder [Unknown]
  - Alopecia [Unknown]
  - Metabolic disorder [Unknown]
  - Mood altered [Unknown]
  - Asthenia [Unknown]
  - Abdominal discomfort [Unknown]
